FAERS Safety Report 4666429-1 (Version None)
Quarter: 2005Q2

REPORT INFORMATION
  Report Type: 
  Country: None (occurrence: None)
  Receive Date: 20050519
  Receipt Date: 20050511
  Transmission Date: 20051028
  Serious: Yes (Other)
  Sender: FDA-Public Use
  Company Number: PHFR2005GB01780

PATIENT
  Age: 9 Year

DRUGS (1)
  1. TEGRETOL [Suspect]
     Dosage: 100 MG, BID
     Route: 048

REACTIONS (3)
  - ASPIRATION [None]
  - COUGH [None]
  - INCREASED BRONCHIAL SECRETION [None]
